FAERS Safety Report 8322371-6 (Version None)
Quarter: 2012Q2

REPORT INFORMATION
  Report Type: 
  Country: None (occurrence: None)
  Receive Date: 20120430
  Receipt Date: 20120423
  Transmission Date: 20120825
  Serious: Yes (Death, Hospitalization)
  Sender: FDA-Public Use
  Company Number: DE-ELI_LILLY_AND_COMPANY-DE201012001982

PATIENT
  Sex: Male
  Weight: 78.3 kg

DRUGS (9)
  1. GEMCITABINE HYDROCHLORIDE [Suspect]
     Indication: NON-SMALL CELL LUNG CANCER
     Dosage: 2340 MG, OTHER
     Route: 042
     Dates: start: 20101130
  2. GEMCITABINE HYDROCHLORIDE [Suspect]
     Dosage: UNK
     Dates: start: 20101209
  3. CISPLATIN [Suspect]
     Dosage: UNK
     Dates: start: 20101222
  4. LAXOBERAL [Concomitant]
     Indication: CONSTIPATION
     Dosage: UNK
     Dates: start: 20101130
  5. TRANSTEC 35 [Concomitant]
     Indication: CANCER PAIN
     Dosage: 35 UG, UNK
     Route: 023
     Dates: start: 20101127
  6. MOVIPREP [Concomitant]
     Indication: CONSTIPATION
     Dates: start: 20101210
  7. TAMSULOSIN HYDROCHLORIDE [Concomitant]
     Indication: HYPERPLASIA
     Dates: start: 20101129
  8. CISPLATIN [Suspect]
     Indication: NON-SMALL CELL LUNG CANCER
     Dosage: 140 MG, OTHER
     Route: 042
     Dates: start: 20101130
  9. PANTOPRAZOLE [Concomitant]
     Indication: CONSTIPATION
     Dates: start: 20101110

REACTIONS (2)
  - CONSTIPATION [None]
  - DEATH [None]
